FAERS Safety Report 13625879 (Version 1)
Quarter: 2017Q2

REPORT INFORMATION
  Report Type: Spontaneous
  Country: US (occurrence: US)
  Receive Date: 20170531
  Receipt Date: 20170531
  Transmission Date: 20170830
  Serious: Yes (Other)
  Sender: FDA-Public Use
  Company Number: US-ASTELLAS-1049909

PATIENT
  Age: 71 Year
  Sex: Male

DRUGS (1)
  1. TARCEVA [Suspect]
     Active Substance: ERLOTINIB HYDROCHLORIDE
     Indication: PRODUCT USED FOR UNKNOWN INDICATION
     Route: 065
     Dates: start: 20120111

REACTIONS (17)
  - Weight decreased [Unknown]
  - Neoplasm progression [Unknown]
  - Neoplasm [Unknown]
  - Oedema peripheral [Recovered/Resolved]
  - Dizziness postural [Recovered/Resolved]
  - Feeling abnormal [Unknown]
  - Headache [Recovered/Resolved]
  - Abdominal pain [Unknown]
  - Dyspepsia [Unknown]
  - Hypophagia [Unknown]
  - Lethargy [Unknown]
  - Sleep disorder [Unknown]
  - Pulmonary mass [Unknown]
  - Dry skin [Unknown]
  - Pleural effusion [Unknown]
  - Rash [Recovering/Resolving]
  - Skin exfoliation [Unknown]

NARRATIVE: CASE EVENT DATE: 20120208
